FAERS Safety Report 7770690 (Version 3)
Quarter: 2013Q2

REPORT INFORMATION
  Report Type: Spontaneous
  Country: US (occurrence: US)
  Receive Date: 20110124
  Receipt Date: 20130416
  Transmission Date: 20140414
  Serious: Yes (Hospitalization)
  Sender: FDA-Public Use
  Company Number: US-BAYER-2011-006786

PATIENT
  Age: 43 Year
  Sex: Female
  Weight: 81.63 kg

DRUGS (3)
  1. YAZ [Suspect]
     Dosage: UNK
     Dates: start: 200804, end: 200904
  2. LEVOTHYROXINE [Concomitant]
     Indication: HYPOTHYROIDISM
     Dosage: 0.015 MG, UNK
     Dates: start: 200604
  3. CONCEPTROL [Concomitant]
     Dosage: UNK
     Dates: start: 2009

REACTIONS (7)
  - Portal vein thrombosis [None]
  - Emotional distress [None]
  - Anxiety [None]
  - Injury [None]
  - Chest pain [None]
  - Abdominal distension [None]
  - Eructation [None]
